FAERS Safety Report 18344432 (Version 11)
Quarter: 2022Q3

REPORT INFORMATION
  Report Type: Report from Study
  Country: US (occurrence: US)
  Receive Date: 20201005
  Receipt Date: 20220803
  Transmission Date: 20221027
  Serious: Yes (Hospitalization, Other)
  Sender: FDA-Public Use
  Company Number: US-TAKEDA-2020TUS029110

PATIENT
  Sex: Female

DRUGS (11)
  1. PONATINIB [Suspect]
     Active Substance: PONATINIB
     Indication: Chronic myeloid leukaemia
     Dosage: 45 MILLIGRAM, QD
     Route: 048
  2. PONATINIB [Suspect]
     Active Substance: PONATINIB
     Dosage: 30 MILLIGRAM, QD
     Route: 048
  3. PONATINIB [Suspect]
     Active Substance: PONATINIB
     Dosage: 30 MILLIGRAM, QD
     Route: 048
  4. PONATINIB [Suspect]
     Active Substance: PONATINIB
     Dosage: 15 MILLIGRAM
     Route: 048
  5. PONATINIB [Suspect]
     Active Substance: PONATINIB
     Dosage: 45 MILLIGRAM, QD
     Route: 048
  6. OLANZAPINE [Concomitant]
     Active Substance: OLANZAPINE
     Dosage: UNK
     Route: 065
  7. ZOFRAN [Concomitant]
     Active Substance: ONDANSETRON HYDROCHLORIDE
     Dosage: UNK
     Route: 065
  8. ZYPREXA [Concomitant]
     Active Substance: OLANZAPINE
     Dosage: UNK
     Route: 065
  9. CYMBALTA [Concomitant]
     Active Substance: DULOXETINE HYDROCHLORIDE
     Dosage: UNK
     Route: 065
  10. XANAX [Concomitant]
     Active Substance: ALPRAZOLAM
     Dosage: UNK
     Route: 065
  11. SEROQUEL [Concomitant]
     Active Substance: QUETIAPINE FUMARATE
     Dosage: UNK
     Route: 065

REACTIONS (46)
  - Hallucination [Unknown]
  - Skin exfoliation [Unknown]
  - Lethargy [Unknown]
  - Rectal haemorrhage [Unknown]
  - Blood pressure increased [Unknown]
  - Urinary tract infection [Unknown]
  - Myalgia [Unknown]
  - Diarrhoea [Unknown]
  - Chest pain [Unknown]
  - General physical health deterioration [Unknown]
  - Attention deficit hyperactivity disorder [Unknown]
  - Malaise [Unknown]
  - Headache [Unknown]
  - Pain of skin [Unknown]
  - Arthralgia [Unknown]
  - Back pain [Unknown]
  - Anxiety [Unknown]
  - Peripheral swelling [Unknown]
  - Depression [Unknown]
  - Weight decreased [Unknown]
  - Borderline personality disorder [Unknown]
  - Quality of life decreased [Unknown]
  - Insomnia [Unknown]
  - Vomiting [Unknown]
  - Diarrhoea infectious [Unknown]
  - Asthenia [Unknown]
  - Dyspnoea [Unknown]
  - Pain [Unknown]
  - Hypertension [Unknown]
  - Decreased appetite [Unknown]
  - Nausea [Unknown]
  - Rash [Unknown]
  - Asthenia [Unknown]
  - Ear pain [Unknown]
  - Somnolence [Unknown]
  - Urticaria [Unknown]
  - Fall [Unknown]
  - Mass [Unknown]
  - Vision blurred [Unknown]
  - Fatigue [Unknown]
  - Skin burning sensation [Unknown]
  - Intervertebral disc protrusion [Unknown]
  - Skin ulcer [Unknown]
  - Skin discolouration [Unknown]
  - Alopecia [Unknown]
  - Product dose omission issue [Unknown]
